FAERS Safety Report 24739608 (Version 1)
Quarter: 2024Q4

REPORT INFORMATION
  Report Type: Report from Study
  Country: US (occurrence: US)
  Receive Date: 20241216
  Receipt Date: 20241216
  Transmission Date: 20250115
  Serious: Yes (Other)
  Sender: TAIHO ONCOLOGY INC
  Company Number: US-TAIHO-2024_020747

PATIENT
  Age: 77 Year
  Sex: Male
  Weight: 86 kg

DRUGS (4)
  1. INQOVI [Suspect]
     Active Substance: CEDAZURIDINE\DECITABINE
     Indication: Myelodysplastic syndrome with single lineage dysplasia
     Dosage: 1 DF (35 MG DECITABINE AND 100 MG CEDAZURIDINE) QD (ON DAYS 1 TO 5) OF 28-DAY CYCLE?ALSO REPORTED AS
     Route: 048
     Dates: start: 202405
  2. ATORVASTATIN [Concomitant]
     Active Substance: ATORVASTATIN
     Indication: Product used for unknown indication
  3. LEVOTHYROXINE [Concomitant]
     Active Substance: LEVOTHYROXINE
     Indication: Product used for unknown indication
  4. VITAMIN D [Concomitant]
     Active Substance: VITAMIN D NOS
     Indication: Product used for unknown indication

REACTIONS (5)
  - Oesophageal stenosis [Unknown]
  - Constipation [Unknown]
  - Gastrooesophageal reflux disease [Recovering/Resolving]
  - Inappropriate schedule of product administration [Unknown]
  - Gastrointestinal scarring [Unknown]

NARRATIVE: CASE EVENT DATE: 20240101
